FAERS Safety Report 6888007-6 (Version None)
Quarter: 2010Q3

REPORT INFORMATION
  Report Type: 
  Country: None (occurrence: None)
  Receive Date: 20100730
  Receipt Date: 20100726
  Transmission Date: 20110219
  Serious: Yes (Congenital Anomaly)
  Sender: FDA-Public Use
  Company Number: A0872582A

PATIENT
  Sex: Male

DRUGS (3)
  1. COMBIVIR [Suspect]
     Indication: HIV INFECTION
     Dates: start: 20030606, end: 20030908
  2. VIRAMUNE [Suspect]
     Indication: HIV INFECTION
     Dates: start: 20030606, end: 20030908
  3. FERROUS SULFATE [Concomitant]

REACTIONS (3)
  - CONGENITAL INGUINAL HERNIA [None]
  - DRUG EXPOSURE DURING PREGNANCY [None]
  - HYDROCELE [None]
